FAERS Safety Report 15808458 (Version 1)
Quarter: 2019Q1

REPORT INFORMATION
  Report Type: Spontaneous
  Country: US (occurrence: US)
  Receive Date: 20190110
  Receipt Date: 20190110
  Transmission Date: 20190417
  Serious: Yes (Other)
  Sender: FDA-Public Use
  Company Number: US-PFIZER INC-2018523132

PATIENT
  Age: 5 Year
  Sex: Female

DRUGS (1)
  1. THROMBIN-JMI [Suspect]
     Active Substance: THROMBIN
     Dosage: UNK
     Route: 061

REACTIONS (9)
  - Product use issue [Unknown]
  - Factor V inhibition [Unknown]
  - Headache [Unknown]
  - Fall [Unknown]
  - Activated partial thromboplastin time prolonged [Unknown]
  - Epistaxis [Unknown]
  - Vomiting [Unknown]
  - Extradural haematoma [Unknown]
  - Prothrombin time prolonged [Unknown]
